FAERS Safety Report 18610343 (Version 1)
Quarter: 2020Q4

REPORT INFORMATION
  Report Type: Spontaneous
  Country: US (occurrence: US)
  Receive Date: 20201214
  Receipt Date: 20201214
  Transmission Date: 20210114
  Serious: No
  Sender: FDA-Public Use
  Company Number: US-BAYER-2020-274983

PATIENT
  Age: 69 Year
  Sex: Female

DRUGS (1)
  1. CLIMARA [Suspect]
     Active Substance: ESTRADIOL
     Dosage: 1 DF, OW
     Route: 062

REACTIONS (3)
  - Product adhesion issue [None]
  - Wrong technique in device usage process [None]
  - Underdose [None]

NARRATIVE: CASE EVENT DATE: 20201126
